FAERS Safety Report 8839519 (Version 1)
Quarter: 2012Q4

REPORT INFORMATION
  Report Type: Spontaneous
  Country: US (occurrence: None)
  Receive Date: 20121012
  Receipt Date: 20121012
  Transmission Date: 20130627
  Serious: No
  Sender: FDA-Public Use
  Company Number: None

PATIENT
  Age: 47 Year
  Sex: Female
  Weight: 86.18 kg

DRUGS (1)
  1. DYSPORT [Suspect]
     Indication: CERVICAL DYSTONIA

REACTIONS (6)
  - Neck pain [None]
  - Musculoskeletal pain [None]
  - Headache [None]
  - Impaired work ability [None]
  - Headache [None]
  - Dizziness [None]
